FAERS Safety Report 6237970-5 (Version None)
Quarter: 2009Q2

REPORT INFORMATION
  Report Type: 
  Country: None (occurrence: None)
  Receive Date: 20090617
  Receipt Date: 20090617
  Transmission Date: 20091009
  Serious: Yes (Hospitalization)
  Sender: FDA-Public Use
  Company Number: None

PATIENT
  Sex: Male
  Weight: 85.3 kg

DRUGS (2)
  1. TEMOZOLOMIDE [Suspect]
     Dosage: 5250 MG
  2. ZONISAMIDE [Concomitant]

REACTIONS (6)
  - FALL [None]
  - GRAND MAL CONVULSION [None]
  - PLATELET COUNT DECREASED [None]
  - SOCIAL PROBLEM [None]
  - STRESS [None]
  - TREATMENT NONCOMPLIANCE [None]
